FAERS Safety Report 25649676 (Version 1)
Quarter: 2025Q3

REPORT INFORMATION
  Report Type: Spontaneous
  Country: US (occurrence: None)
  Receive Date: 20250805
  Receipt Date: 20250805
  Transmission Date: 20251020
  Serious: No
  Sender: FDA-CTU
  Company Number: None

PATIENT
  Age: 57 Year
  Sex: Female
  Weight: 114.75 kg

DRUGS (6)
  1. ZEPBOUND [Suspect]
     Active Substance: TIRZEPATIDE
     Indication: Weight decreased
     Dosage: OTHER QUANTITY : 1 VILE;?FREQUENCY : WEEKLY;?STRENGTH:  2.5ML?
     Route: 058
     Dates: start: 20250804
  2. METOPROLOL TARTRATE [Concomitant]
     Active Substance: METOPROLOL TARTRATE
  3. LISINOPRIL [Concomitant]
     Active Substance: LISINOPRIL
  4. NIFEDIPINE [Concomitant]
     Active Substance: NIFEDIPINE
  5. ALLOPURINOL [Concomitant]
     Active Substance: ALLOPURINOL
  6. FAMOTIDINE [Concomitant]
     Active Substance: FAMOTIDINE

REACTIONS (7)
  - Middle insomnia [None]
  - Hypoaesthesia [None]
  - Paraesthesia [None]
  - Asthenia [None]
  - Paraesthesia [None]
  - Flushing [None]
  - Electrolyte imbalance [None]

NARRATIVE: CASE EVENT DATE: 20250804
